FAERS Safety Report 10560566 (Version 1)
Quarter: 2014Q4

REPORT INFORMATION
  Report Type: Spontaneous
  Country: US (occurrence: US)
  Receive Date: 20141103
  Receipt Date: 20141103
  Transmission Date: 20150529
  Serious: No
  Sender: FDA-Public Use
  Company Number: US-SA-2014SA112486

PATIENT
  Age: 19 Year
  Sex: Male
  Weight: 53.52 kg

DRUGS (24)
  1. ALBUTEROL. [Concomitant]
     Active Substance: ALBUTEROL
  2. HYOSCYAMINE [Concomitant]
     Active Substance: HYOSCYAMINE
  3. LUMIZYME [Suspect]
     Active Substance: ALGLUCOSIDASE ALFA
     Indication: GLYCOGEN STORAGE DISEASE TYPE II
     Dosage: 900 MG WEEKLY IN 118LB PATIENT
     Route: 042
     Dates: start: 20120301
  4. AMBIEN [Concomitant]
     Active Substance: ZOLPIDEM TARTRATE
  5. GENTAMICIN. [Concomitant]
     Active Substance: GENTAMICIN
  6. KETOCONAZOLE. [Concomitant]
     Active Substance: KETOCONAZOLE
  7. VITAMIN C [Concomitant]
     Active Substance: ASCORBIC ACID
  8. SOLU-MEDROL [Concomitant]
     Active Substance: METHYLPREDNISOLONE SODIUM SUCCINATE
  9. TRIAMCINOLONE [Concomitant]
     Active Substance: TRIAMCINOLONE
  10. SILVER NITRATE. [Concomitant]
     Active Substance: SILVER NITRATE
  11. ZINC OXIDE. [Concomitant]
     Active Substance: ZINC OXIDE
  12. DIPHENHYDRAMINE [Concomitant]
     Active Substance: DIPHENHYDRAMINE
  13. KLONOPIN [Concomitant]
     Active Substance: CLONAZEPAM
  14. BENADRYL [Concomitant]
     Active Substance: DIPHENHYDRAMINE HYDROCHLORIDE
  15. XOPENEX [Concomitant]
     Active Substance: LEVALBUTEROL HYDROCHLORIDE
  16. ACETAMINOPHEN. [Concomitant]
     Active Substance: ACETAMINOPHEN
  17. PRILOSEC [Concomitant]
     Active Substance: OMEPRAZOLE MAGNESIUM
  18. FUROSEMIDE. [Concomitant]
     Active Substance: FUROSEMIDE
  19. LUMIZYME [Suspect]
     Active Substance: ALGLUCOSIDASE ALFA
     Indication: GLYCOGEN STORAGE DISEASE TYPE II
     Dosage: 900 MG WEEKLY IN 118LB PATIENT
     Route: 042
     Dates: start: 20120301
  20. HEPARIN [Concomitant]
     Active Substance: HEPARIN SODIUM
  21. PROMETHAZINE [Concomitant]
     Active Substance: PROMETHAZINE\PROMETHAZINE HYDROCHLORIDE
  22. LINUM USITATISSIMUM SEED OIL [Concomitant]
  23. LORTAB [Concomitant]
     Active Substance: ACETAMINOPHEN\HYDROCODONE BITARTRATE
  24. CARNITOR [Concomitant]
     Active Substance: LEVOCARNITINE

REACTIONS (1)
  - Medical device pain [Unknown]
